FAERS Safety Report 8920971 (Version 1)
Quarter: 2012Q4

REPORT INFORMATION
  Report Type: 
  Country: US (occurrence: US)
  Receive Date: 20121123
  Receipt Date: 20121123
  Transmission Date: 20130627
  Serious: No
  Sender: FDA-Public Use
  Company Number: US-009507513-1211USA006574

PATIENT
  Sex: Female

DRUGS (1)
  1. IMPLANON [Suspect]
     Dosage: UNK
     Dates: end: 20121109

REACTIONS (3)
  - Peripheral artery thrombosis [Unknown]
  - Device breakage [Unknown]
  - Complication of device removal [Unknown]
